FAERS Safety Report 4360981-1 (Version None)
Quarter: 2004Q2

REPORT INFORMATION
  Report Type: 
  Country: None (occurrence: None)
  Receive Date: 20040517
  Receipt Date: 20040429
  Transmission Date: 20050107
  Serious: Yes (Hospitalization)
  Sender: FDA-Public Use
  Company Number: DSA_24338_2004

PATIENT
  Age: 86 Year
  Sex: Female

DRUGS (8)
  1. TEVETEN [Suspect]
     Indication: HYPERTENSION
     Dosage: 600 MG Q DAY PO
     Route: 048
     Dates: start: 20010601, end: 20031204
  2. PLAVIX [Concomitant]
  3. CENTY WITH KALIUMCHLORIDE [Concomitant]
  4. RIVOTRIL [Concomitant]
  5. CARDOPAX [Concomitant]
  6. VAGIFEM [Concomitant]
  7. STILLNOCT [Concomitant]
  8. HJERTEMAGNYL [Concomitant]

REACTIONS (5)
  - CARDIOMEGALY [None]
  - DIARRHOEA [None]
  - DIVERTICULUM INTESTINAL [None]
  - QRS AXIS ABNORMAL [None]
  - SINUS BRADYCARDIA [None]
